FAERS Safety Report 8894293 (Version 1)
Quarter: 2012Q4

REPORT INFORMATION
  Report Type: 
  Country: US (occurrence: US)
  Receive Date: 20121107
  Receipt Date: 20121107
  Transmission Date: 20130627
  Serious: No
  Sender: FDA-Public Use
  Company Number: US-AMGEN-USASP2011055644

PATIENT
  Age: 58 Year
  Sex: Female
  Weight: 79.37 kg

DRUGS (12)
  1. ENBREL [Suspect]
     Indication: RHEUMATOID ARTHRITIS
     Dosage: 50 mg, qwk
     Route: 058
     Dates: start: 20110916
  2. LISINOPRIL AND HYDROCHLOROTHIAZIDE [Concomitant]
  3. METHOTREXATE [Concomitant]
     Dosage: 2.5 mg, UNK
  4. HYDROXYCHLOROQUINE [Concomitant]
     Dosage: 200 mg, UNK
  5. IBUPROFEN [Concomitant]
  6. ASTAXANTHIN [Concomitant]
     Dosage: 4 mg, UNK
  7. MULTIVITAMIN                       /00097801/ [Concomitant]
  8. VITAMIN E                          /00110501/ [Concomitant]
     Dosage: 1000 IU, UNK
  9. FISH OIL [Concomitant]
  10. L-ARGININE                         /00126101/ [Concomitant]
  11. FOLIC ACID [Concomitant]
     Dosage: 1 mg, UNK
  12. VITAMIN B-12 [Concomitant]
     Dosage: 250 mug, UNK

REACTIONS (1)
  - Headache [Not Recovered/Not Resolved]
